FAERS Safety Report 14374914 (Version 7)
Quarter: 2019Q1

REPORT INFORMATION
  Report Type: Report from Study
  Country: DE (occurrence: DE)
  Receive Date: 20180111
  Receipt Date: 20190104
  Transmission Date: 20190417
  Serious: Yes (Hospitalization, Other)
  Sender: FDA-Public Use
  Company Number: DE-MYLANLABS-2018M1000350

PATIENT
  Age: 34 Month
  Sex: Male
  Weight: 12.2 kg

DRUGS (83)
  1. ASPARAGINASE [Suspect]
     Active Substance: ASPARAGINASE
     Dosage: 5400 IU, UNK
     Route: 042
  2. ASPARAGINASE [Suspect]
     Active Substance: ASPARAGINASE
     Dosage: 5400 IU, UNK
     Route: 042
  3. ASPARAGINASE [Suspect]
     Active Substance: ASPARAGINASE
     Dosage: 5400 IU, UNK
     Route: 042
  4. ASPARAGINASE [Suspect]
     Active Substance: ASPARAGINASE
     Dosage: 5400 INTERNATIONAL UNIT, UNK
     Route: 042
     Dates: start: 20160306
  5. DOXORUBICIN [Suspect]
     Active Substance: DOXORUBICIN
     Indication: ACUTE LYMPHOCYTIC LEUKAEMIA
     Dosage: 13.5 MG, UNK
     Route: 042
  6. CYTARABINE. [Suspect]
     Active Substance: CYTARABINE
     Dosage: UNK
     Route: 037
     Dates: start: 20160208, end: 20160208
  7. CYCLOPHOSPHAMIDE. [Suspect]
     Active Substance: CYCLOPHOSPHAMIDE
     Indication: ACUTE LYMPHOCYTIC LEUKAEMIA
     Dosage: 550 MG, QD
     Route: 042
     Dates: start: 20151017, end: 20151017
  8. CYCLOPHOSPHAMIDE. [Suspect]
     Active Substance: CYCLOPHOSPHAMIDE
     Indication: PHILADELPHIA CHROMOSOME POSITIVE
     Dosage: 550 MG, QD
     Route: 042
     Dates: start: 20151203, end: 20151203
  9. CYCLOPHOSPHAMIDE. [Suspect]
     Active Substance: CYCLOPHOSPHAMIDE
     Dosage: 110 MG, UNK
     Route: 042
     Dates: start: 20151219, end: 20151221
  10. ASPARAGINASE [Suspect]
     Active Substance: ASPARAGINASE
     Dosage: 5400 INTERNATIONAL UNIT, UNK
     Route: 042
     Dates: start: 20160310
  11. ASPARAGINASE [Suspect]
     Active Substance: ASPARAGINASE
     Dosage: 5400 INTERNATIONAL UNIT, UNK
     Route: 042
     Dates: start: 20160313
  12. ETOPOSIDE. [Suspect]
     Active Substance: ETOPOSIDE
     Indication: ACUTE LYMPHOCYTIC LEUKAEMIA
     Dosage: 52 MG, UNK
     Route: 042
     Dates: start: 20160206, end: 20160208
  13. DOXORUBICIN [Suspect]
     Active Substance: DOXORUBICIN
     Dosage: 13.5 MG, UNK
     Route: 042
  14. DOXORUBICIN [Suspect]
     Active Substance: DOXORUBICIN
     Dosage: 13.5 MG, UNK
     Route: 042
  15. DOXORUBICIN [Suspect]
     Active Substance: DOXORUBICIN
     Dosage: 13.5 MG, UNK
     Route: 042
  16. DOXORUBICIN [Suspect]
     Active Substance: DOXORUBICIN
     Dosage: 13.5 MILLIGRAM, UNK
     Route: 042
     Dates: start: 20160704
  17. DOXORUBICIN [Suspect]
     Active Substance: DOXORUBICIN
     Dosage: 13.5 MILLIGRAM, UNK
     Route: 042
     Dates: start: 20160303
  18. DOXORUBICIN [Suspect]
     Active Substance: DOXORUBICIN
     Dosage: 13.5 MILLIGRAM, UNK
     Route: 042
     Dates: start: 20160324
  19. CYTARABINE. [Suspect]
     Active Substance: CYTARABINE
     Dosage: 42 MG, UNK
     Route: 042
  20. CYTARABINE. [Suspect]
     Active Substance: CYTARABINE
     Dosage: 2160 MG, UNK
     Route: 042
     Dates: start: 20151221
  21. CYCLOPHOSPHAMIDE. [Suspect]
     Active Substance: CYCLOPHOSPHAMIDE
     Dosage: 570 MG, UNK
     Route: 042
     Dates: start: 20160730, end: 20160730
  22. GLIVEC [Suspect]
     Active Substance: IMATINIB MESYLATE
     Indication: PHILADELPHIA CHROMOSOME POSITIVE
     Dosage: UNK
  23. VINDESINE [Suspect]
     Active Substance: VINDESINE
     Dosage: 1.6 MG, UNK
     Route: 042
     Dates: start: 20160119, end: 20160119
  24. METHOTREXATE. [Suspect]
     Active Substance: METHOTREXATE
     Indication: PHILADELPHIA CHROMOSOME POSITIVE
     Dosage: 2700 MG, QD
     Route: 042
     Dates: start: 20151218, end: 20151219
  25. DAUNORUBICIN [Suspect]
     Active Substance: DAUNORUBICIN
     Indication: PHILADELPHIA CHROMOSOME POSITIVE
     Dosage: 16 MG, QD
     Route: 042
     Dates: start: 20160118, end: 20160119
  26. ASPARAGINASE [Suspect]
     Active Substance: ASPARAGINASE
     Dosage: 5400 IU, UNK
     Route: 042
  27. DOXORUBICIN [Suspect]
     Active Substance: DOXORUBICIN
     Dosage: 13.5 MG, UNK
     Route: 042
  28. DOXORUBICIN [Suspect]
     Active Substance: DOXORUBICIN
     Dosage: 13.5 MILLIGRAM, UNK
     Route: 042
     Dates: start: 20160627
  29. CYTARABINE. [Suspect]
     Active Substance: CYTARABINE
     Dosage: 42 MG, UNK
     Route: 042
  30. METHOTREXATE. [Suspect]
     Active Substance: METHOTREXATE
     Dosage: UNK (REGULARY APPLICATION VIA THERAPY ELEMENT HR3)
     Route: 037
     Dates: start: 20160208
  31. ASPARAGINASE [Suspect]
     Active Substance: ASPARAGINASE
     Indication: PHILADELPHIA CHROMOSOME POSITIVE
     Dosage: 5400 IU, UNK
     Route: 042
  32. ASPARAGINASE [Suspect]
     Active Substance: ASPARAGINASE
     Dosage: 13500 IU, UNK
     Route: 042
     Dates: start: 20151223, end: 20151223
  33. ASPARAGINASE [Suspect]
     Active Substance: ASPARAGINASE
     Dosage: 5400 INTERNATIONAL UNIT
     Route: 042
     Dates: start: 20160602
  34. ASPARAGINASE [Suspect]
     Active Substance: ASPARAGINASE
     Dosage: 5400 INTERNATIONAL UNIT, UNK
     Route: 042
     Dates: start: 20160630
  35. VINCRISTINE [Suspect]
     Active Substance: VINCRISTINE
     Indication: PHILADELPHIA CHROMOSOME POSITIVE
     Dosage: 0.8 MG, TOTAL, 0.8 MG, ONCE/SINGLE
     Route: 042
     Dates: start: 20151223, end: 20151223
  36. VINCRISTINE [Suspect]
     Active Substance: VINCRISTINE
     Dosage: 0.8 MG, TOTAL, 0.8 MG, ONCE/SINGLE
     Route: 042
     Dates: start: 20160704
  37. VINCRISTINE [Suspect]
     Active Substance: VINCRISTINE
     Dosage: 0.8 MG, TOTAL, 0.8 MG, ONCE/SINGLE
     Route: 042
     Dates: start: 20160712, end: 20160712
  38. DOXORUBICIN [Suspect]
     Active Substance: DOXORUBICIN
     Dosage: 13.5 MG, UNK
     Route: 042
     Dates: start: 20160310
  39. DOXORUBICIN [Suspect]
     Active Substance: DOXORUBICIN
     Dosage: 13.5 MILLIGRAM, UNK
     Route: 042
     Dates: start: 20160602
  40. CYTARABINE. [Suspect]
     Active Substance: CYTARABINE
     Dosage: 41 MILLIGRAM, QD
     Route: 042
     Dates: start: 20151026, end: 20151029
  41. VINDESINE [Suspect]
     Active Substance: VINDESINE
     Indication: ACUTE LYMPHOCYTIC LEUKAEMIA
     Dosage: 1.6 MG, UNK
     Route: 042
  42. VINDESINE [Suspect]
     Active Substance: VINDESINE
     Indication: PHILADELPHIA CHROMOSOME POSITIVE
     Dosage: 16 MILLIGRAM
     Route: 042
     Dates: start: 20160114
  43. METHOTREXATE. [Suspect]
     Active Substance: METHOTREXATE
     Indication: PRODUCT USED FOR UNKNOWN INDICATION
     Dosage: UNK
     Route: 048
     Dates: start: 20160913
  44. IFOSFAMIDE. [Suspect]
     Active Substance: IFOSFAMIDE
     Indication: PHILADELPHIA CHROMOSOME POSITIVE
     Dosage: UNK
  45. ASPARAGINASE [Suspect]
     Active Substance: ASPARAGINASE
     Dosage: 1300 IU, UNK
     Route: 042
     Dates: start: 20160303
  46. ASPARAGINASE [Suspect]
     Active Substance: ASPARAGINASE
     Dosage: 13500 INTERNATIONAL UNIT, QD
     Route: 042
     Dates: start: 20151223, end: 20151223
  47. ASPARAGINASE [Suspect]
     Active Substance: ASPARAGINASE
     Dosage: 13000 INTERNATIONAL UNIT, QD
     Route: 042
     Dates: start: 20160209, end: 20160209
  48. VINCRISTINE [Suspect]
     Active Substance: VINCRISTINE
     Indication: ACUTE LYMPHOCYTIC LEUKAEMIA
     Dosage: 0.8 MG, TOTAL,0.8 MG, ONCE/SINGLE
     Route: 042
     Dates: start: 20151218
  49. VINCRISTINE [Suspect]
     Active Substance: VINCRISTINE
     Dosage: 0.8 MG, TOTAL, 0.8 MG, ONCE/SINGLE
     Route: 042
     Dates: start: 20160324
  50. VINCRISTINE [Suspect]
     Active Substance: VINCRISTINE
     Dosage: 0.8 MG, TOTAL, 0.8 MG, ONCE/SINGLE
     Route: 042
     Dates: start: 20160620
  51. VINCRISTINE [Suspect]
     Active Substance: VINCRISTINE
     Dosage: 0.8 MG, TOTAL, 0.8 MG, ONCE/SINGLE
     Route: 042
     Dates: start: 20160627
  52. DOXORUBICIN [Suspect]
     Active Substance: DOXORUBICIN
     Indication: PHILADELPHIA CHROMOSOME POSITIVE
     Dosage: 13.5 MG, UNK
     Route: 042
  53. DOXORUBICIN [Suspect]
     Active Substance: DOXORUBICIN
     Dosage: 13.5 MG, UNK
     Route: 042
  54. CYTARABINE. [Suspect]
     Active Substance: CYTARABINE
     Dosage: 1040 MG, UNK (4 APPLICATIONS TO 1040 MG)
     Route: 042
     Dates: start: 20160204, end: 20160206
  55. CYTARABINE. [Suspect]
     Active Substance: CYTARABINE
     Dosage: UNK
     Route: 065
     Dates: start: 20160811
  56. ASPARAGINASE [Suspect]
     Active Substance: ASPARAGINASE
     Dosage: 5400 IU, UNK
     Route: 042
  57. ASPARAGINASE [Suspect]
     Active Substance: ASPARAGINASE
     Dosage: 13000 IU, UNK
     Route: 042
     Dates: start: 20160209, end: 20160209
  58. ASPARAGINASE [Suspect]
     Active Substance: ASPARAGINASE
     Dosage: 5400 IU, UNK
     Route: 042
  59. ASPARAGINASE [Suspect]
     Active Substance: ASPARAGINASE
     Dosage: 5400 IU, UNK
     Route: 042
  60. ASPARAGINASE [Suspect]
     Active Substance: ASPARAGINASE
     Dosage: 1300 INTERNATIONAL UNIT, QD
     Route: 042
     Dates: start: 20160303
  61. VINCRISTINE [Suspect]
     Active Substance: VINCRISTINE
     Dosage: 0.8 MG, TOTAL,0.8 MG, ONCE/SINGLE
     Route: 042
     Dates: start: 20160303, end: 20160303
  62. VINCRISTINE [Suspect]
     Active Substance: VINCRISTINE
     Dosage: 0.8 MG, TOTAL, 0.8 MG, ONCE/SINGLE
     Route: 042
     Dates: start: 20160310
  63. CYTARABINE. [Suspect]
     Active Substance: CYTARABINE
     Indication: ACUTE LYMPHOCYTIC LEUKAEMIA
     Dosage: 42 MG, UNK
     Route: 042
  64. CYTARABINE. [Suspect]
     Active Substance: CYTARABINE
     Dosage: 42 MG, UNK
     Route: 042
  65. CYTARABINE. [Suspect]
     Active Substance: CYTARABINE
     Dosage: UNK
  66. CYCLOPHOSPHAMIDE. [Suspect]
     Active Substance: CYCLOPHOSPHAMIDE
     Dosage: 560 MG, UNK
     Route: 042
     Dates: start: 20160416, end: 20160416
  67. CYCLOPHOSPHAMIDE. [Suspect]
     Active Substance: CYCLOPHOSPHAMIDE
     Dosage: 550 MG, UNK
     Route: 042
     Dates: start: 20160730, end: 20160730
  68. GLIVEC [Suspect]
     Active Substance: IMATINIB MESYLATE
     Indication: SYSTEMIC SCLERODERMA
     Dosage: UNK
  69. IFOSFAMIDE. [Suspect]
     Active Substance: IFOSFAMIDE
     Indication: ACUTE LYMPHOCYTIC LEUKAEMIA
     Dosage: 416 MG, QD
     Route: 042
     Dates: start: 20160115, end: 20160117
  70. DOXORUBICIN [Suspect]
     Active Substance: DOXORUBICIN
     Dosage: 13.5 MILLIGRAM, UNK
     Route: 042
     Dates: start: 20160712
  71. CYTARABINE. [Suspect]
     Active Substance: CYTARABINE
     Indication: PHILADELPHIA CHROMOSOME POSITIVE
     Dosage: 41 MG, UNK
     Route: 042
     Dates: start: 20151102, end: 20151105
  72. CYTARABINE. [Suspect]
     Active Substance: CYTARABINE
     Dosage: 41 MG, UNK
     Route: 042
     Dates: start: 20151109, end: 20151112
  73. CYTARABINE. [Suspect]
     Active Substance: CYTARABINE
     Dosage: 41 MG, UNK
     Route: 042
     Dates: start: 20151019, end: 20151222
  74. GLIVEC [Suspect]
     Active Substance: IMATINIB MESYLATE
     Indication: ACUTE LYMPHOCYTIC LEUKAEMIA
     Dosage: 150 MG, QD
     Route: 048
     Dates: start: 20150921, end: 20170307
  75. MERCAPTOPURINE. [Suspect]
     Active Substance: MERCAPTOPURINE
     Indication: PRODUCT USED FOR UNKNOWN INDICATION
     Dosage: UNK
     Route: 048
     Dates: start: 20160913
  76. METHOTREXATE. [Suspect]
     Active Substance: METHOTREXATE
     Indication: ACUTE LYMPHOCYTIC LEUKAEMIA
     Dosage: 2600 MG, QD
     Route: 042
     Dates: start: 20160114, end: 20160115
  77. DAUNORUBICIN [Suspect]
     Active Substance: DAUNORUBICIN
     Indication: ACUTE LYMPHOCYTIC LEUKAEMIA
     Dosage: UNK
  78. ASPARAGINASE [Suspect]
     Active Substance: ASPARAGINASE
     Indication: ACUTE LYMPHOCYTIC LEUKAEMIA
     Dosage: 5400 IU, UNK
     Route: 042
  79. ASPARAGINASE [Suspect]
     Active Substance: ASPARAGINASE
     Dosage: 5400 INTERNATIONAL UNIT, UNK
     Route: 042
     Dates: start: 20160627
  80. ETOPOSIDE. [Suspect]
     Active Substance: ETOPOSIDE
     Indication: PHILADELPHIA CHROMOSOME POSITIVE
     Dosage: UNK
  81. VINCRISTINE [Suspect]
     Active Substance: VINCRISTINE
     Dosage: 0.8 MG, TOTAL, 0.8 MG, ONCE/SINGLE
     Route: 042
     Dates: start: 20160317
  82. VINCRISTINE [Suspect]
     Active Substance: VINCRISTINE
     Dosage: 1.6 MG, TOTAL
     Route: 042
     Dates: start: 20160119, end: 20160119
  83. CYTARABINE. [Suspect]
     Active Substance: CYTARABINE
     Dosage: 41 MILLIGRAM, QD
     Route: 042
     Dates: start: 20151109, end: 20151112

REACTIONS (12)
  - Febrile neutropenia [Recovered/Resolved]
  - Infectious colitis [Unknown]
  - Stomatitis [Unknown]
  - Neutropenia [Recovered/Resolved]
  - Upper respiratory tract infection [Recovered/Resolved]
  - Lymphopenia [Unknown]
  - Constipation [Unknown]
  - Pyrexia [Recovered/Resolved]
  - Hypoxia [Unknown]
  - Muscular weakness [Unknown]
  - Pruritus [Unknown]
  - Urinary tract infection [Unknown]

NARRATIVE: CASE EVENT DATE: 20151110
